FAERS Safety Report 20514613 (Version 1)
Quarter: 2022Q1

REPORT INFORMATION
  Report Type: Spontaneous
  Country: DE (occurrence: DE)
  Receive Date: 20220224
  Receipt Date: 20220224
  Transmission Date: 20220423
  Serious: Yes (Other)
  Sender: FDA-Public Use
  Company Number: DE-BRISTOL-MYERS SQUIBB COMPANY-BMS-2022-026995

PATIENT
  Age: 61 Year
  Sex: Male

DRUGS (6)
  1. ELIQUIS [Suspect]
     Active Substance: APIXABAN
     Indication: Cerebrovascular accident prophylaxis
     Dosage: 5 MILLIGRAM, BID
  2. IPILIMUMAB [Suspect]
     Active Substance: IPILIMUMAB
     Indication: Metastatic malignant melanoma
     Dosage: UNK
     Route: 065
  3. NIVOLUMAB [Suspect]
     Active Substance: NIVOLUMAB
     Indication: Metastatic malignant melanoma
     Dosage: UNK
     Route: 065
  4. METOPROLOL [Concomitant]
     Active Substance: METOPROLOL
     Indication: Product used for unknown indication
     Dosage: 95 MILLIGRAM, QD
     Route: 065
  5. IBUPROFEN [Concomitant]
     Active Substance: IBUPROFEN
     Indication: Product used for unknown indication
     Dosage: AS NEEDED
     Route: 065
  6. PANTOZOL [Concomitant]
     Active Substance: PANTOPRAZOLE SODIUM
     Indication: Dyspepsia
     Dosage: UNK
     Route: 065

REACTIONS (1)
  - Acute kidney injury [Unknown]
